FAERS Safety Report 11870184 (Version 4)
Quarter: 2016Q4

REPORT INFORMATION
  Report Type: Spontaneous
  Country: JP (occurrence: JP)
  Receive Date: 20151228
  Receipt Date: 20161214
  Transmission Date: 20170206
  Serious: Yes (Hospitalization)
  Sender: FDA-Public Use
  Company Number: JP-BEH-2015057260

PATIENT
  Age: 16 Year
  Sex: Female
  Weight: 29.5 kg

DRUGS (16)
  1. TRICHLORMETHIAZIDE [Concomitant]
     Active Substance: TRICHLORMETHIAZIDE
     Indication: PROTEIN-LOSING GASTROENTEROPATHY
     Dosage: START DATE: ??-APR-2014
     Route: 048
  2. HIZENTRA [Suspect]
     Active Substance: HUMAN IMMUNOGLOBULIN G
     Indication: BLOOD IMMUNOGLOBULIN G DECREASED
     Dosage: 5 G, QW
     Route: 058
     Dates: start: 20111117, end: 20151117
  3. ALDACTONE-A [Concomitant]
     Active Substance: SPIRONOLACTONE
     Indication: PROTEIN-LOSING GASTROENTEROPATHY
     Dosage: START DATE: ??-???-2011
     Route: 048
  4. THYRADIN S [Concomitant]
     Active Substance: LEVOTHYROXINE SODIUM
     Route: 048
  5. HIZENTRA [Suspect]
     Active Substance: HUMAN IMMUNOGLOBULIN G
     Dosage: 5 G, QW
     Route: 058
     Dates: start: 20151208, end: 20151208
  6. HIZENTRA [Suspect]
     Active Substance: HUMAN IMMUNOGLOBULIN G
     Dosage: 5 G, QW
     Route: 058
     Dates: start: 20151215, end: 20151215
  7. FUROSEMIDE. [Concomitant]
     Active Substance: FUROSEMIDE
     Indication: PROTEIN-LOSING GASTROENTEROPATHY
     Dosage: START DATE: ??-???-2011
     Route: 048
  8. LAC-B [Concomitant]
     Active Substance: BIFIDOBACTERIUM SPP.
     Route: 048
  9. KENKETU GLOVENIN-I [Concomitant]
     Active Substance: HUMAN IMMUNOGLOBULIN G
     Indication: BLOOD IMMUNOGLOBULIN G DECREASED
     Route: 041
     Dates: start: 20150911, end: 20151113
  10. LOPRESSOR [Concomitant]
     Active Substance: METOPROLOL TARTRATE
     Indication: ATRIAL TACHYCARDIA
     Dosage: START DATE: ??-AUG-2015
     Route: 048
  11. KENKETU ALBUMIN 25% [Concomitant]
     Dosage: WITH SEVERAL WASHOUT PERIODS IN BETWEEN.
     Route: 065
     Dates: start: 20150905, end: 20151207
  12. HIZENTRA [Suspect]
     Active Substance: HUMAN IMMUNOGLOBULIN G
     Dosage: 5 G, QW
     Route: 058
     Dates: start: 20151201, end: 20151201
  13. GLUCONSAN K [Concomitant]
     Route: 048
  14. HIZENTRA [Suspect]
     Active Substance: HUMAN IMMUNOGLOBULIN G
     Dosage: 5 G, QW
     Route: 058
     Dates: start: 20151124, end: 20151124
  15. HEPARIN [Concomitant]
     Active Substance: HEPARIN SODIUM
     Indication: PROTEIN-LOSING GASTROENTEROPATHY
     Route: 041
     Dates: start: 20150904, end: 20151221
  16. WARFARIN [Concomitant]
     Active Substance: WARFARIN
     Indication: THROMBOSIS PROPHYLAXIS
     Dosage: START DATE: ??-JUL-2013
     Route: 048

REACTIONS (3)
  - White blood cell count decreased [Recovered/Resolved]
  - Platelet count decreased [Recovered/Resolved]
  - Neutropenia [Recovered/Resolved]

NARRATIVE: CASE EVENT DATE: 20151204
